FAERS Safety Report 4910667-7 (Version None)
Quarter: 2006Q1

REPORT INFORMATION
  Report Type: 
  Country: None (occurrence: None)
  Receive Date: 20060214
  Receipt Date: 20051130
  Transmission Date: 20060701
  Serious: Yes (Other)
  Sender: FDA-Public Use
  Company Number: PHNU2005DE03954

PATIENT
  Age: 66 Year
  Sex: Male

DRUGS (6)
  1. ZOMETA [Suspect]
     Indication: METASTASES TO BONE
     Dosage: 4 MG, UNK
     Dates: start: 20031001, end: 20051001
  2. AREDIA [Suspect]
     Indication: METASTASES TO BONE
     Dates: end: 20030901
  3. RADIOTHERAPY [Concomitant]
     Indication: METASTASES TO BONE
     Dosage: 45 GY
     Route: 061
     Dates: start: 20050418, end: 20050531
  4. RADIOTHERAPY [Concomitant]
     Dosage: 50 GY
     Route: 061
     Dates: start: 20050602, end: 20050606
  5. CASODEX [Concomitant]
     Indication: PROSTATE CANCER
     Dosage: 1 DF, QD
     Route: 048
     Dates: start: 20050201
  6. DURAGESIC-100 [Concomitant]
     Indication: PROSTATE CANCER
     Dosage: 50 UG, UNK
     Route: 062
     Dates: start: 20040201

REACTIONS (3)
  - BONE DEBRIDEMENT [None]
  - OSTEONECROSIS [None]
  - TOOTH EXTRACTION [None]
